FAERS Safety Report 9255802 (Version 1)
Quarter: 2013Q2

REPORT INFORMATION
  Report Type: Spontaneous
  Country: US (occurrence: US)
  Receive Date: 20130425
  Receipt Date: 20130425
  Transmission Date: 20140414
  Serious: Yes (Death)
  Sender: FDA-Public Use
  Company Number: US-COVIDIEN/TYCO HEALTHCARE/MALLINCKRODT-T201301783

PATIENT
  Sex: Male

DRUGS (9)
  1. MORPHINE SULFATE [Suspect]
     Dosage: UNK
  2. ATIVAN [Concomitant]
     Indication: ANXIETY
     Dosage: UNK, PRN
  3. TYLENOL                            /00020001/ [Concomitant]
     Indication: PYREXIA
     Dosage: UNK, PRN
  4. HALDOL                             /00027401/ [Concomitant]
     Indication: ANXIETY
     Dosage: UNK
  5. ALBUTEROL                          /00139501/ [Concomitant]
     Indication: CHRONIC OBSTRUCTIVE PULMONARY DISEASE
     Dosage: UNK
  6. PREDNISONE [Concomitant]
     Indication: CHRONIC OBSTRUCTIVE PULMONARY DISEASE
     Dosage: UNK
  7. COLACE [Concomitant]
     Indication: CONSTIPATION
     Dosage: UNK
  8. ATROPINE [Concomitant]
     Indication: CHRONIC OBSTRUCTIVE PULMONARY DISEASE
     Dosage: UNK
  9. TERAZOSIN [Concomitant]
     Indication: PROSTATOMEGALY
     Dosage: UNK

REACTIONS (1)
  - Death [Fatal]
